FAERS Safety Report 6108546-5 (Version None)
Quarter: 2009Q1

REPORT INFORMATION
  Report Type: 
  Country: None (occurrence: None)
  Receive Date: 20090309
  Receipt Date: 20090226
  Transmission Date: 20090719
  Serious: Yes (Other)
  Sender: FDA-Public Use
  Company Number: PHHY2009CA03708

PATIENT
  Sex: Male

DRUGS (6)
  1. CLOZARIL [Suspect]
     Indication: SCHIZOPHRENIA
     Dosage: 200 MG QAM AND 250 MG QHS
     Route: 048
     Dates: start: 20020601
  2. ATROPINE [Concomitant]
     Dosage: 2 DROPS BID
  3. SOFLAX [Concomitant]
     Dosage: 2 QHS
  4. FLUANXOL - SLOW RELEASE [Concomitant]
     Dosage: 20 MG/ML
     Route: 030
  5. CLONAZEPAM [Concomitant]
     Dosage: 0.5 MG, BID
  6. CELEXA [Concomitant]

REACTIONS (2)
  - METABOLIC SYNDROME [None]
  - WEIGHT INCREASED [None]
